FAERS Safety Report 19728825 (Version 1)
Quarter: 2021Q3

REPORT INFORMATION
  Report Type: Spontaneous
  Country: NL (occurrence: NL)
  Receive Date: 20210820
  Receipt Date: 20210820
  Transmission Date: 20211014
  Serious: Yes (Hospitalization)
  Sender: FDA-Public Use
  Company Number: NL-PFIZER INC-202101018952

PATIENT
  Sex: Male
  Weight: 85 kg

DRUGS (8)
  1. PROMETHAZINE [Concomitant]
     Active Substance: PROMETHAZINE HYDROCHLORIDE
  2. LORAZEPAM. [Concomitant]
     Active Substance: LORAZEPAM
  3. PIPAMPERON [Concomitant]
     Active Substance: PIPAMPERONE HYDROCHLORIDE
  4. ZOLPIDEM [Concomitant]
     Active Substance: ZOLPIDEM TARTRATE
  5. CALCI CHEW D3 [Concomitant]
     Active Substance: CALCIUM CARBONATE\CHOLECALCIFEROL
  6. HYDROCHLOORTHIAZIDE [Concomitant]
     Active Substance: HYDROCHLOROTHIAZIDE
  7. ESTRACYT [Suspect]
     Active Substance: ESTRAMUSTINE
     Dosage: 140 MG, 3X/DAY
     Dates: start: 2017
  8. TAMSULOSINE [TAMSULOSIN] [Concomitant]
     Active Substance: TAMSULOSIN

REACTIONS (2)
  - Restlessness [Unknown]
  - Amnesia [Unknown]
